FAERS Safety Report 5387546-7 (Version None)
Quarter: 2007Q3

REPORT INFORMATION
  Report Type: 
  Country: None (occurrence: None)
  Receive Date: 20070712
  Receipt Date: 20070702
  Transmission Date: 20080115
  Serious: Yes (Other)
  Sender: FDA-Public Use
  Company Number: B0478320A

PATIENT

DRUGS (6)
  1. HYCAMTIN [Suspect]
     Indication: GLIOBLASTOMA MULTIFORME
     Dosage: 2.5 MG/M2/CYCLIC / INTRAVENOUS INFUSION
     Route: 042
  2. RADIOTHERAPY [Concomitant]
  3. PROCARBAZINE [Concomitant]
  4. LOMUSTINE [Concomitant]
  5. VINCRISTINE [Concomitant]
  6. TEMOZOLOMIDE [Concomitant]

REACTIONS (1)
  - PULMONARY EMBOLISM [None]
